FAERS Safety Report 10143865 (Version 2)
Quarter: 2014Q2

REPORT INFORMATION
  Report Type: Spontaneous
  Country: ZA (occurrence: ZA)
  Receive Date: 20140430
  Receipt Date: 20140507
  Transmission Date: 20141212
  Serious: Yes (Death, Other)
  Sender: FDA-Public Use
  Company Number: ZA-ABBVIE-14P-143-1229941-00

PATIENT
  Sex: 0

DRUGS (2)
  1. DEXMEDETOMIDINE INJECTION (PRECEDEX) [Suspect]
     Indication: CORONARY ARTERY BYPASS
     Dates: start: 20140418, end: 20140418
  2. DEXMEDETOMIDINE INJECTION (PRECEDEX) [Suspect]
     Indication: SEDATION

REACTIONS (3)
  - Arrhythmia [Fatal]
  - Electrolyte imbalance [Unknown]
  - Dialysis [Unknown]
